FAERS Safety Report 7830125-X (Version None)
Quarter: 2011Q4

REPORT INFORMATION
  Report Type: 
  Country: None (occurrence: None)
  Receive Date: 20111021
  Receipt Date: 20111007
  Transmission Date: 20120403
  Serious: Yes (Hospitalization)
  Sender: FDA-Public Use
  Company Number: IT-CELGENEUS-083-21880-11101040

PATIENT
  Sex: Female

DRUGS (3)
  1. DEXAMETHASONE SODIUM PHOSPHATE [Suspect]
     Indication: MULTIPLE MYELOMA
     Route: 041
     Dates: start: 20110803, end: 20110913
  2. REVLIMID [Suspect]
     Indication: MULTIPLE MYELOMA
     Route: 048
     Dates: start: 20110803
  3. DEXAMETHASONE SODIUM PHOSPHATE [Suspect]
     Route: 041
     Dates: start: 20111012

REACTIONS (1)
  - DIABETES MELLITUS [None]
